FAERS Safety Report 4342382-5 (Version None)
Quarter: 2004Q2

REPORT INFORMATION
  Report Type: 
  Country: None (occurrence: None)
  Receive Date: 20040421
  Receipt Date: 20040114
  Transmission Date: 20050107
  Serious: Yes (Other)
  Sender: FDA-Public Use
  Company Number: PHEH2004US00898

PATIENT
  Age: 3 Year
  Sex: Male
  Weight: 22 kg

DRUGS (6)
  1. TRILEPTAL [Suspect]
     Indication: CONVULSION
  2. DIAMOX [Concomitant]
  3. ZANTAC [Concomitant]
  4. BACLOFEN [Concomitant]
  5. XOPENEX [Concomitant]
  6. ALBUTEROL [Concomitant]

REACTIONS (3)
  - SECONDARY HYPOTHYROIDISM [None]
  - THYROXINE FREE DECREASED [None]
  - WEIGHT INCREASED [None]
